FAERS Safety Report 4382962-4 (Version None)
Quarter: 2004Q2

REPORT INFORMATION
  Report Type: 
  Country: None (occurrence: None)
  Receive Date: 20040622
  Receipt Date: 20040608
  Transmission Date: 20050107
  Serious: Yes (Death)
  Sender: FDA-Public Use
  Company Number: NL-MERCK-0406NLD00007

PATIENT
  Age: 84 Year
  Sex: Female

DRUGS (6)
  1. CHOLECALCIFEROL [Concomitant]
     Route: 048
  2. FOLIC ACID [Concomitant]
     Route: 048
  3. HYDROXOCOBALAMIN [Concomitant]
     Route: 065
  4. LEVOTHYROXINE SODIUM [Concomitant]
     Route: 048
  5. ZOCOR [Suspect]
     Indication: PROPHYLAXIS
     Route: 048
     Dates: start: 20040413, end: 20040401
  6. ZOCOR [Suspect]
     Route: 048
     Dates: start: 20040401

REACTIONS (4)
  - DEATH [None]
  - DYSPNOEA EXERTIONAL [None]
  - FATIGUE [None]
  - VERTIGO [None]
